FAERS Safety Report 4337314-X (Version None)
Quarter: 2004Q2

REPORT INFORMATION
  Report Type: 
  Country: None (occurrence: None)
  Receive Date: 20040412
  Receipt Date: 20040412
  Transmission Date: 20050107
  Serious: Yes (Hospitalization, Other)
  Sender: FDA-Public Use
  Company Number: None

PATIENT
  Age: 76 Year
  Sex: Female
  Weight: 59 kg

DRUGS (12)
  1. THALIDOMIDE 100 MG PO QHS 04/06/04 [Suspect]
     Indication: MULTIPLE MYELOMA
     Dosage: 100 MG  QHS  PO
     Route: 048
     Dates: start: 20040406
  2. VINCRISTINE [Suspect]
  3. ADRIMYCIN Q 28 DAY CYCLE NEXT CYCLE STARTS 4/19/04 [Suspect]
  4. DEXAMETHASONE [Suspect]
  5. COLACE [Concomitant]
  6. COUMADIN [Concomitant]
  7. COMPAZINE [Concomitant]
  8. SENOKOT [Concomitant]
  9. SYNTHROID [Concomitant]
  10. M.V.I. [Concomitant]
  11. CALCIUM W/ VIT D [Concomitant]
  12. PROTONIX [Concomitant]

REACTIONS (2)
  - FATIGUE [None]
  - PNEUMONIA [None]
